FAERS Safety Report 8796463 (Version 2)
Quarter: 2012Q4

REPORT INFORMATION
  Report Type: 
  Country: US (occurrence: US)
  Receive Date: 20120920
  Receipt Date: 20121126
  Transmission Date: 20130627
  Serious: Yes (Disabling)
  Sender: FDA-Public Use
  Company Number: US-CELGENEUS-163-20785-12091641

PATIENT
  Sex: Male

DRUGS (7)
  1. THALOMID [Suspect]
     Indication: MULTIPLE MYELOMA
     Dosage: 100 Milligram
     Route: 048
     Dates: start: 200506, end: 2010
  2. THALOMID [Suspect]
     Dosage: 100 Milligram
     Route: 048
     Dates: start: 201001, end: 201002
  3. THALOMID [Suspect]
     Dosage: 100 Milligram
     Route: 048
     Dates: start: 201002, end: 201111
  4. THALOMID [Suspect]
     Dosage: 50 Milligram
     Route: 048
     Dates: start: 201111, end: 201203
  5. THALOMID [Suspect]
     Dosage: 100 Milligram
     Route: 048
     Dates: start: 201203
  6. JANTOVEN [Concomitant]
     Indication: DRUG USE FOR UNKNOWN INDICATION
     Dosage: 1 Milligram
     Route: 065
  7. NAMENDA [Concomitant]
     Indication: ALZHEIMER^S DISEASE
     Dosage: 10 Milligram
     Route: 065

REACTIONS (1)
  - Dementia Alzheimer^s type [Not Recovered/Not Resolved]
